FAERS Safety Report 13596188 (Version 1)
Quarter: 2017Q2

REPORT INFORMATION
  Report Type: Spontaneous
  Country: US (occurrence: US)
  Receive Date: 20170531
  Receipt Date: 20170531
  Transmission Date: 20170830
  Serious: No
  Sender: FDA-Public Use
  Company Number: US-JNJFOC-20170322010

PATIENT
  Age: 43 Year
  Sex: Male
  Weight: 70.76 kg

DRUGS (1)
  1. TYLENOL REGULAR STRENGTH [Suspect]
     Active Substance: ACETAMINOPHEN
     Indication: HEADACHE
     Dosage: 1 TABLET, ONE TIME
     Route: 048
     Dates: start: 20170319, end: 20170320

REACTIONS (2)
  - Drug hypersensitivity [Recovered/Resolved]
  - Underdose [Recovering/Resolving]

NARRATIVE: CASE EVENT DATE: 20170319
